FAERS Safety Report 10187241 (Version 1)
Quarter: 2014Q2

REPORT INFORMATION
  Report Type: Spontaneous
  Country: US (occurrence: US)
  Receive Date: 20140522
  Receipt Date: 20140522
  Transmission Date: 20141212
  Serious: Yes (Hospitalization)
  Sender: FDA-Public Use
  Company Number: PHEH2014US010118

PATIENT
  Sex: 0

DRUGS (1)
  1. CLOZAPINE [Suspect]
     Dosage: UNK UKN, UNK

REACTIONS (2)
  - Agranulocytosis [Unknown]
  - Neutrophil count decreased [Unknown]
